FAERS Safety Report 12063239 (Version 1)
Quarter: 2016Q1

REPORT INFORMATION
  Report Type: Spontaneous
  Country: US (occurrence: US)
  Receive Date: 20160210
  Receipt Date: 20160210
  Transmission Date: 20160526
  Serious: No
  Sender: FDA-Public Use
  Company Number: US-ALLERGAN-1501233US

PATIENT
  Sex: Female

DRUGS (3)
  1. BOTOX COSMETIC [Suspect]
     Active Substance: ONABOTULINUMTOXINA
     Indication: SKIN WRINKLING
     Dosage: 7 UNITS, SINGLE
     Route: 030
     Dates: start: 20140927, end: 20140927
  2. BOTOX COSMETIC [Suspect]
     Active Substance: ONABOTULINUMTOXINA
     Indication: SKIN WRINKLING
  3. BOTOX COSMETIC [Suspect]
     Active Substance: ONABOTULINUMTOXINA
     Indication: SKIN WRINKLING
     Dosage: 31 UNITS, SINGLE
     Route: 030
     Dates: start: 20140927, end: 20140927

REACTIONS (11)
  - Night sweats [Unknown]
  - Off label use [Unknown]
  - Ataxia [Unknown]
  - Fatigue [Unknown]
  - Abdominal pain upper [Unknown]
  - Influenza like illness [Unknown]
  - Noninfective sialoadenitis [Unknown]
  - Paraesthesia [Unknown]
  - Seizure [Unknown]
  - Nystagmus [Unknown]
  - Facial paresis [Unknown]
